FAERS Safety Report 6686720-7 (Version None)
Quarter: 2010Q2

REPORT INFORMATION
  Report Type: 
  Country: None (occurrence: None)
  Receive Date: 20100415
  Receipt Date: 20100401
  Transmission Date: 20101027
  Serious: Yes (Hospitalization)
  Sender: FDA-Public Use
  Company Number: 2010AM001544

PATIENT
  Age: 51 Year
  Sex: Female
  Weight: 173.2741 kg

DRUGS (19)
  1. SYMLIN [Suspect]
     Indication: TYPE 2 DIABETES MELLITUS
     Dosage: 45 MCG TID;SC, 15 MCG, TID, SC, 15 MCG, TID, SC
     Route: 058
     Dates: start: 20070101, end: 20070101
  2. SYMLIN [Suspect]
     Indication: TYPE 2 DIABETES MELLITUS
     Dosage: 45 MCG TID;SC, 15 MCG, TID, SC, 15 MCG, TID, SC
     Route: 058
     Dates: start: 20080101, end: 20080101
  3. SYMLIN [Suspect]
     Indication: TYPE 2 DIABETES MELLITUS
     Dosage: 45 MCG TID;SC, 15 MCG, TID, SC, 15 MCG, TID, SC
     Route: 058
     Dates: start: 20091201, end: 20100301
  4. LANTUS [Concomitant]
  5. NOVOLOG [Concomitant]
  6. ACETAMINOPHEN [Concomitant]
  7. KEPPRA [Concomitant]
  8. LAMICTAL [Concomitant]
  9. METHADONE HCL [Concomitant]
  10. MULTI-VITAMIN [Concomitant]
  11. ZEMPLAR [Concomitant]
  12. PRAVACHOL [Concomitant]
  13. GABAPENTIN [Concomitant]
  14. LORTAB [Concomitant]
  15. PROZAC [Concomitant]
  16. COREG [Concomitant]
  17. RISPERDAL [Concomitant]
  18. SYNTHROID [Concomitant]
  19. KLONOPIN [Concomitant]

REACTIONS (11)
  - CARDIAC FAILURE CONGESTIVE [None]
  - DECREASED APPETITE [None]
  - DEHYDRATION [None]
  - DEPRESSED LEVEL OF CONSCIOUSNESS [None]
  - DRUG HYPERSENSITIVITY [None]
  - FLUID OVERLOAD [None]
  - HEADACHE [None]
  - MENTAL STATUS CHANGES [None]
  - RASH [None]
  - RENAL FAILURE ACUTE [None]
  - WEIGHT DECREASED [None]
